FAERS Safety Report 9822821 (Version 5)
Quarter: 2014Q2

REPORT INFORMATION
  Report Type: Spontaneous
  Country: US (occurrence: US)
  Receive Date: 20140116
  Receipt Date: 20140423
  Transmission Date: 20141212
  Serious: Yes (Life-Threatening, Hospitalization, Other)
  Sender: FDA-Public Use
  Company Number: US-009507513-1401USA004915

PATIENT
  Sex: Female
  Weight: 50.79 kg

DRUGS (7)
  1. JANUVIA [Suspect]
     Indication: TYPE 2 DIABETES MELLITUS
     Dosage: 100 MG, QD
     Route: 048
     Dates: start: 20080623, end: 20091004
  2. PREVACID [Concomitant]
     Indication: GASTROOESOPHAGEAL REFLUX DISEASE
     Dosage: UNK
     Dates: start: 20061010
  3. GLUMETZA [Concomitant]
     Indication: TYPE 2 DIABETES MELLITUS
     Dosage: 1000 MG, QD
     Dates: start: 2008, end: 2010
  4. ACTOS [Concomitant]
     Indication: TYPE 2 DIABETES MELLITUS
  5. GLIPIZIDE [Concomitant]
     Indication: TYPE 2 DIABETES MELLITUS
  6. NOVOLOG [Concomitant]
     Indication: TYPE 2 DIABETES MELLITUS
     Dosage: UNK
  7. LANTUS [Concomitant]
     Indication: TYPE 2 DIABETES MELLITUS
     Dosage: UNK

REACTIONS (39)
  - Pancreatic carcinoma [Unknown]
  - Pancreaticoduodenectomy [Unknown]
  - Cerebrovascular accident [Unknown]
  - Gastrectomy [Unknown]
  - Ductal adenocarcinoma of pancreas [Unknown]
  - Metastases to lung [Unknown]
  - Bile duct cancer stage 0 [Unknown]
  - Aortic dissection [Unknown]
  - Splenectomy [Unknown]
  - Abnormal loss of weight [Unknown]
  - Transient ischaemic attack [Unknown]
  - Vision blurred [Unknown]
  - Cardiac disorder [Unknown]
  - Functional gastrointestinal disorder [Unknown]
  - Pulmonary mass [Unknown]
  - Hiatus hernia [Unknown]
  - Hypertension [Unknown]
  - Anxiety [Unknown]
  - Depression [Unknown]
  - Breast calcifications [Unknown]
  - Electrocardiogram abnormal [Unknown]
  - Aortic arteriosclerosis [Unknown]
  - Dilatation intrahepatic duct acquired [Unknown]
  - Aortic calcification [Unknown]
  - Nephrolithiasis [Unknown]
  - Appendicectomy [Unknown]
  - Mesenteric artery stenosis [Unknown]
  - Abdominal distension [Unknown]
  - Abdominal rigidity [Unknown]
  - Autoimmune thyroiditis [Unknown]
  - Thrombophlebitis superficial [Unknown]
  - Postmenopausal haemorrhage [Unknown]
  - Rectal haemorrhage [Unknown]
  - Skin lesion [Unknown]
  - Back pain [Unknown]
  - Abdominal pain upper [Recovered/Resolved]
  - Abdominal pain upper [Recovered/Resolved]
  - Constipation [Unknown]
  - Nausea [Unknown]
